FAERS Safety Report 11772126 (Version 1)
Quarter: 2015Q4

REPORT INFORMATION
  Report Type: Spontaneous
  Country: US (occurrence: US)
  Receive Date: 20151124
  Receipt Date: 20151124
  Transmission Date: 20160304
  Serious: Yes (Hospitalization)
  Sender: FDA-Public Use
  Company Number: US-MYLANLABS-2015M1041344

PATIENT

DRUGS (1)
  1. DOXORUBICIN [Suspect]
     Active Substance: DOXORUBICIN
     Indication: LIPOSARCOMA METASTATIC
     Route: 065

REACTIONS (2)
  - Granulomatous pneumonitis [Recovered/Resolved]
  - Type IV hypersensitivity reaction [Recovered/Resolved]
